FAERS Safety Report 10935012 (Version 3)
Quarter: 2015Q2

REPORT INFORMATION
  Report Type: Spontaneous
  Country: BR (occurrence: BR)
  Receive Date: 20150320
  Receipt Date: 20150511
  Transmission Date: 20150821
  Serious: Yes (Hospitalization, Other)
  Sender: FDA-Public Use
  Company Number: BR-PFIZER INC-2015092173

PATIENT
  Age: 73 Year
  Sex: Female
  Weight: 80 kg

DRUGS (11)
  1. LIPITOR [Suspect]
     Active Substance: ATORVASTATIN CALCIUM
     Indication: BLOOD CHOLESTEROL ABNORMAL
     Dosage: 40 MG, DAILY
     Route: 048
     Dates: start: 200504
  2. NEXIUM [Concomitant]
     Active Substance: ESOMEPRAZOLE MAGNESIUM
     Indication: ABDOMINAL PAIN UPPER
     Dosage: 2 TABLETS OF 40MG (80MG) DAILY
     Dates: start: 2005
  3. SELOZOK [Concomitant]
     Active Substance: METOPROLOL SUCCINATE
     Dosage: 50 MG, DAILY
     Dates: start: 2008
  4. NOEX [Concomitant]
     Active Substance: BUDESONIDE
     Indication: RESPIRATION ABNORMAL
     Dosage: 50 ?G, 2X/DAY
     Dates: start: 2014
  5. SIMVASTATIN. [Concomitant]
     Active Substance: SIMVASTATIN
     Dosage: UNK
  6. ARADOIS H [Concomitant]
     Active Substance: HYDROCHLOROTHIAZIDE\LOSARTAN POTASSIUM
     Indication: HYPERTENSION
     Dosage: 2 DF, DAILY
     Dates: start: 2008
  7. AAS [Concomitant]
     Active Substance: ASPIRIN
     Indication: ANTICOAGULANT THERAPY
     Dosage: 100 MG, DAILY
     Dates: start: 2005
  8. METFORMIN [Concomitant]
     Active Substance: METFORMIN HYDROCHLORIDE
     Dosage: 500 MG, 4X/DAY
     Dates: start: 2005
  9. EFFIENT [Concomitant]
     Active Substance: PRASUGREL HYDROCHLORIDE
     Indication: PROPHYLAXIS
     Dosage: 10 MG, DAILY
     Dates: start: 2008
  10. ARADOIS [Concomitant]
     Active Substance: LOSARTAN POTASSIUM
     Dosage: UNK
  11. SERETIDE [Concomitant]
     Active Substance: FLUTICASONE FUROATE\SALMETEROL XINAFOATE
     Indication: ASTHMA
     Dosage: UNK, 3X/DAY
     Dates: start: 2008

REACTIONS (6)
  - Burn infection [Unknown]
  - Burns third degree [Unknown]
  - Fatigue [Not Recovered/Not Resolved]
  - Cardiac disorder [Recovered/Resolved]
  - Tendon rupture [Not Recovered/Not Resolved]
  - Cardiac disorder [Recovered/Resolved]

NARRATIVE: CASE EVENT DATE: 2007
